FAERS Safety Report 18709946 (Version 3)
Quarter: 2021Q1

REPORT INFORMATION
  Report Type: Spontaneous
  Country: JP (occurrence: JP)
  Receive Date: 20210106
  Receipt Date: 20210110
  Transmission Date: 20210419
  Serious: Yes (Other)
  Sender: FDA-Public Use
  Company Number: JP-BEH-2021126938

PATIENT
  Sex: Male

DRUGS (1)
  1. HIZENTRA [Suspect]
     Active Substance: HUMAN IMMUNOGLOBULIN G
     Indication: NEUROLOGICAL SYMPTOM
     Dosage: 28 GRAM, QW
     Route: 058
     Dates: start: 20201023, end: 20201203

REACTIONS (1)
  - Drug ineffective [Unknown]
